FAERS Safety Report 25806170 (Version 2)
Quarter: 2025Q4

REPORT INFORMATION
  Report Type: Report from Study
  Country: US (occurrence: US)
  Receive Date: 20250916
  Receipt Date: 20251011
  Transmission Date: 20260117
  Serious: Yes (Other)
  Sender: ABBVIE
  Company Number: US-ABBVIE-6458963

PATIENT
  Sex: Female

DRUGS (1)
  1. SYNTHROID [Suspect]
     Active Substance: LEVOTHYROXINE SODIUM
     Indication: Product used for unknown indication
     Dosage: FORM STRENGTH: 100 MICROGRAM
     Route: 048
     Dates: start: 1978

REACTIONS (6)
  - Thyroid disorder [Unknown]
  - Post-traumatic stress disorder [Unknown]
  - Hypothyroidism [Unknown]
  - Cataract [Unknown]
  - General physical health deterioration [Unknown]
  - Hyperthyroidism [Unknown]
